FAERS Safety Report 22378919 (Version 1)
Quarter: 2023Q2

REPORT INFORMATION
  Report Type: Spontaneous
  Country: US (occurrence: US)
  Receive Date: 20230529
  Receipt Date: 20230529
  Transmission Date: 20230721
  Serious: No
  Sender: FDA-Public Use
  Company Number: US-ELI_LILLY_AND_COMPANY-US202305012891

PATIENT
  Age: 64 Year
  Sex: Female

DRUGS (3)
  1. RETEVMO [Interacting]
     Active Substance: SELPERCATINIB
     Indication: Thyroid cancer
     Dosage: 160 MG, BID
     Route: 048
     Dates: start: 202303
  2. NEXIUM I.V. [Interacting]
     Active Substance: ESOMEPRAZOLE SODIUM
     Indication: Product used for unknown indication
     Dosage: UNK UNK, UNKNOWN
     Route: 065
     Dates: start: 202212
  3. LENVIMA [Suspect]
     Active Substance: LENVATINIB
     Indication: Thyroid cancer
     Dosage: 14 MG, DAILY
     Route: 048
     Dates: start: 202212

REACTIONS (3)
  - Gastrooesophageal reflux disease [Unknown]
  - Drug interaction [Unknown]
  - Nasopharyngitis [Unknown]
